FAERS Safety Report 6545704-X (Version None)
Quarter: 2010Q1

REPORT INFORMATION
  Report Type: 
  Country: None (occurrence: None)
  Receive Date: 20100121
  Receipt Date: 20100115
  Transmission Date: 20100710
  Serious: Yes (Death, Hospitalization)
  Sender: FDA-Public Use
  Company Number: PHHO2010IT00943

PATIENT
  Sex: Male
  Weight: 70 kg

DRUGS (1)
  1. AFINITOR [Suspect]
     Indication: METASTATIC RENAL CELL CARCINOMA

REACTIONS (3)
  - ASTHENIA [None]
  - DYSPNOEA [None]
  - MYOCARDIAL INFARCTION [None]
